FAERS Safety Report 4286352-4 (Version None)
Quarter: 2004Q1

REPORT INFORMATION
  Report Type: 
  Country: None (occurrence: None)
  Receive Date: 20040205
  Receipt Date: 20040130
  Transmission Date: 20041129
  Serious: Yes (Hospitalization)
  Sender: FDA-Public Use
  Company Number: WAES 0401NZL00029

PATIENT
  Sex: Male
  Weight: 90 kg

DRUGS (7)
  1. ALLOPURINOL [Concomitant]
  2. CILAZAPRIL [Concomitant]
  3. FELODIPINE [Concomitant]
  4. GLICLAZIDE [Concomitant]
     Dates: start: 20021114
  5. INSULIN [Concomitant]
     Dates: start: 19931201
  6. ZOCOR [Suspect]
     Indication: HYPERLIPIDAEMIA
     Route: 048
     Dates: start: 20030101, end: 20031101
  7. ZOCOR [Suspect]
     Route: 048
     Dates: start: 20031118, end: 20031201

REACTIONS (6)
  - ABDOMINAL PAIN [None]
  - HEPATIC FIBROSIS [None]
  - HEPATITIS [None]
  - LIVER FUNCTION TEST ABNORMAL [None]
  - NAUSEA [None]
  - VOMITING [None]
